FAERS Safety Report 6044436-4 (Version None)
Quarter: 2009Q1

REPORT INFORMATION
  Report Type: 
  Country: None (occurrence: None)
  Receive Date: 20090120
  Receipt Date: 20090114
  Transmission Date: 20090719
  Serious: Yes (Other)
  Sender: FDA-Public Use
  Company Number: US-ABBOTT-08P-163-0459674-00

PATIENT
  Sex: Female
  Weight: 97.156 kg

DRUGS (15)
  1. LUPRON DEPOT [Suspect]
     Indication: VAGINAL HAEMORRHAGE
     Dosage: TO RIGHT HIP / DISCONTINUED AFTER 1 DOSE
     Route: 030
     Dates: start: 20080625
  2. LUPRON DEPOT [Suspect]
     Indication: MENORRHAGIA
  3. LUPRON DEPOT [Suspect]
     Indication: DYSMENORRHOEA
  4. LUPRON DEPOT [Suspect]
     Indication: CYST REMOVAL
  5. LUPRON DEPOT [Suspect]
     Indication: ENDOMETRIOSIS
  6. ZYRTEC [Concomitant]
     Indication: HYPERSENSITIVITY
     Route: 048
  7. ZYRTEC [Concomitant]
     Indication: ASTHMA
  8. SINGULAIR [Concomitant]
     Indication: HYPERSENSITIVITY
     Route: 048
  9. SINGULAIR [Concomitant]
     Indication: ASTHMA
  10. ALBUTEROL [Concomitant]
     Indication: ASTHMA
     Route: 055
  11. UNKNOWN PAIN MEDICATION [Concomitant]
     Indication: DRUG USE FOR UNKNOWN INDICATION
  12. XYZAL [Concomitant]
     Indication: DRUG USE FOR UNKNOWN INDICATION
  13. TRINESSA [Concomitant]
     Indication: DRUG USE FOR UNKNOWN INDICATION
  14. ORTHTRICYCLENE [Concomitant]
     Indication: DRUG USE FOR UNKNOWN INDICATION
  15. MULTI-VITAMIN [Concomitant]
     Indication: DRUG USE FOR UNKNOWN INDICATION

REACTIONS (60)
  - ABDOMINAL DISTENSION [None]
  - ABDOMINAL MASS [None]
  - ABDOMINAL PAIN [None]
  - ABDOMINAL PAIN LOWER [None]
  - ABDOMINAL PAIN UPPER [None]
  - ABNORMAL SENSATION IN EYE [None]
  - ACTIVITIES OF DAILY LIVING IMPAIRED [None]
  - ADNEXA UTERI PAIN [None]
  - ARTHRALGIA [None]
  - BACK DISORDER [None]
  - BACK PAIN [None]
  - BLEPHAROSPASM [None]
  - BONE PAIN [None]
  - BURNING SENSATION [None]
  - CHEST DISCOMFORT [None]
  - CHEST PAIN [None]
  - COUGH [None]
  - DISTURBANCE IN ATTENTION [None]
  - DIZZINESS [None]
  - DYSPHAGIA [None]
  - DYSPNOEA [None]
  - EAR DISORDER [None]
  - EAR PAIN [None]
  - FEELING COLD [None]
  - GAIT DISTURBANCE [None]
  - HEAD DISCOMFORT [None]
  - HEADACHE [None]
  - HOT FLUSH [None]
  - HYPOAESTHESIA [None]
  - INJECTION SITE HAEMATOMA [None]
  - INJECTION SITE IRRITATION [None]
  - INJECTION SITE PAIN [None]
  - INSOMNIA [None]
  - JOINT RANGE OF MOTION DECREASED [None]
  - JOINT SWELLING [None]
  - MIGRAINE [None]
  - MOBILITY DECREASED [None]
  - MUSCLE SPASMS [None]
  - MUSCULAR WEAKNESS [None]
  - MUSCULOSKELETAL PAIN [None]
  - MUSCULOSKELETAL STIFFNESS [None]
  - MYELOPATHY [None]
  - NASAL CONGESTION [None]
  - NAUSEA [None]
  - NECK PAIN [None]
  - OEDEMA PERIPHERAL [None]
  - OROPHARYNGEAL PAIN [None]
  - OVARIAN CYST [None]
  - PAIN [None]
  - PARAESTHESIA [None]
  - POSTURE ABNORMAL [None]
  - RADICULOPATHY [None]
  - SENSORY LOSS [None]
  - SPINAL OSTEOARTHRITIS [None]
  - TINNITUS [None]
  - TORTICOLLIS [None]
  - VAGINAL HAEMORRHAGE [None]
  - VISION BLURRED [None]
  - VOMITING [None]
  - WEIGHT INCREASED [None]
